FAERS Safety Report 24317415 (Version 1)
Quarter: 2024Q3

REPORT INFORMATION
  Report Type: Spontaneous
  Country: CN (occurrence: CN)
  Receive Date: 20240913
  Receipt Date: 20240913
  Transmission Date: 20241016
  Serious: Yes (Other)
  Sender: BAYER
  Company Number: CN-BAYER-2024A130902

PATIENT
  Age: 78 Year
  Sex: Female
  Weight: 40 kg

DRUGS (1)
  1. ULTRAVIST [Suspect]
     Active Substance: IOPROMIDE
     Indication: Pulmonary imaging procedure
     Dosage: 38 G, ONCE
     Route: 042
     Dates: start: 20240903, end: 20240903

REACTIONS (3)
  - Chills [Recovering/Resolving]
  - Cold sweat [Recovering/Resolving]
  - Palpitations [Recovering/Resolving]

NARRATIVE: CASE EVENT DATE: 20240903
